FAERS Safety Report 26114632 (Version 1)
Quarter: 2025Q4

REPORT INFORMATION
  Report Type: Report from Study
  Country: EU (occurrence: EU)
  Receive Date: 20251202
  Receipt Date: 20251202
  Transmission Date: 20260117
  Serious: Yes (Other)
  Sender: JOHNSON AND JOHNSON
  Company Number: EU-JNJFOC-20251172471

PATIENT
  Sex: Male
  Weight: 76 kg

DRUGS (22)
  1. UPTRAVI [Suspect]
     Active Substance: SELEXIPAG
     Indication: Pulmonary arterial hypertension
     Dosage: TOTAL DAILY DOSE: 400
     Route: 048
     Dates: start: 20251106, end: 20251117
  2. UPTRAVI [Suspect]
     Active Substance: SELEXIPAG
     Dosage: TOTAL DAILY DOSE: 400
     Route: 048
     Dates: start: 20250926, end: 20250930
  3. UPTRAVI [Suspect]
     Active Substance: SELEXIPAG
     Dosage: TOTAL DAILY DOSE: 1200
     Route: 048
     Dates: start: 20250920, end: 20250926
  4. UPTRAVI [Suspect]
     Active Substance: SELEXIPAG
     Dosage: TOTAL DAILY DOSE: 400
     Route: 048
     Dates: start: 20250822, end: 20250920
  5. MACITENTAN\TADALAFIL [Suspect]
     Active Substance: MACITENTAN\TADALAFIL
     Indication: Pulmonary arterial hypertension
     Route: 048
  6. ADCIRCA [Concomitant]
     Active Substance: TADALAFIL
     Indication: Pulmonary arterial hypertension
     Route: 048
     Dates: start: 20221215
  7. REVATIO [Concomitant]
     Active Substance: SILDENAFIL CITRATE
     Indication: Pulmonary arterial hypertension
     Route: 048
     Dates: start: 20180912, end: 20221214
  8. FERROUS GLUCONATE [Concomitant]
     Active Substance: FERROUS GLUCONATE
     Indication: Iron deficiency
     Route: 048
     Dates: start: 202308, end: 20240502
  9. VITAMIN B12 [Concomitant]
     Active Substance: CYANOCOBALAMIN
     Indication: Vitamin B12 deficiency
     Route: 048
     Dates: start: 2023, end: 20240502
  10. FOLSAURE VITBALANS [Concomitant]
     Indication: Prophylaxis
     Route: 048
     Dates: start: 2023, end: 20240502
  11. IPRAMOL [IPRATROPIUM BROMIDE;LEVOSALBUTAMOL] [Concomitant]
     Indication: Product used for unknown indication
     Route: 055
     Dates: start: 20240213, end: 20240502
  12. AMPICILLIN SODIUM\SULBACTAM SODIUM [Concomitant]
     Active Substance: AMPICILLIN SODIUM\SULBACTAM SODIUM
     Indication: Antibiotic therapy
     Route: 042
     Dates: start: 20240213, end: 20240214
  13. AMPICILLIN SODIUM\SULBACTAM SODIUM [Concomitant]
     Active Substance: AMPICILLIN SODIUM\SULBACTAM SODIUM
     Route: 048
     Dates: start: 20240210, end: 20240212
  14. PIPERACILLIN SODIUM\TAZOBACTAM SODIUM [Concomitant]
     Active Substance: PIPERACILLIN SODIUM\TAZOBACTAM SODIUM
     Indication: Antibiotic therapy
     Route: 042
     Dates: start: 20240215, end: 20240221
  15. OXYGEN [Concomitant]
     Active Substance: OXYGEN
     Indication: Oxygen saturation abnormal
     Route: 055
     Dates: start: 20240213, end: 20240328
  16. AMOXI CLAVULAN AL [Concomitant]
     Indication: Antibiotic therapy
     Route: 048
     Dates: start: 202309, end: 202309
  17. CHOLECALCIFEROL [Concomitant]
     Active Substance: CHOLECALCIFEROL
     Indication: Vitamin D deficiency
     Route: 048
     Dates: start: 2023
  18. ATORVASTATIN [Concomitant]
     Active Substance: ATORVASTATIN
     Indication: Hypercholesterolaemia
     Route: 048
     Dates: start: 20191029
  19. TORSEMIDE [Concomitant]
     Active Substance: TORSEMIDE
     Indication: Diuretic therapy
     Route: 048
     Dates: start: 20190502
  20. AMLODIPINE [Concomitant]
     Active Substance: AMLODIPINE BESYLATE
     Indication: Pulmonary arterial hypertension
     Route: 048
     Dates: start: 20190912
  21. AMLODIPINE [Concomitant]
     Active Substance: AMLODIPINE BESYLATE
     Indication: Pulmonary hypertension
  22. OPSUMIT [Concomitant]
     Active Substance: MACITENTAN
     Indication: Pulmonary arterial hypertension
     Route: 048
     Dates: start: 20191129

REACTIONS (1)
  - Angina pectoris [Recovered/Resolved]

NARRATIVE: CASE EVENT DATE: 20251101
